FAERS Safety Report 8912658 (Version 1)
Quarter: 2012Q4

REPORT INFORMATION
  Report Type: 
  Country: US (occurrence: US)
  Receive Date: 20121115
  Receipt Date: 20121115
  Transmission Date: 20130627
  Serious: No
  Sender: FDA-Public Use
  Company Number: US-PFIZER INC-2012285866

PATIENT
  Age: 60 Year
  Sex: Female
  Weight: 87.08 kg

DRUGS (1)
  1. LYRICA [Suspect]
     Indication: LOW BACK PAIN
     Dosage: 100 mg, UNK
     Route: 048
     Dates: start: 201209, end: 201209

REACTIONS (1)
  - Rash [Not Recovered/Not Resolved]
